FAERS Safety Report 9956394 (Version 2)
Quarter: 2014Q1

REPORT INFORMATION
  Report Type: Report from Study
  Country: US (occurrence: US)
  Receive Date: 20140304
  Receipt Date: 20140304
  Transmission Date: 20141002
  Serious: No
  Sender: FDA-Public Use
  Company Number: US-ABBVIE-11P-163-0844687-00

PATIENT
  Age: 32 Year
  Sex: Female

DRUGS (14)
  1. HUMIRA [Suspect]
     Indication: CROHN^S DISEASE
     Dates: start: 2009, end: 2009
  2. VICODIN [Suspect]
     Indication: PAIN
  3. HUMIRA [Suspect]
     Indication: CROHN^S DISEASE
     Dates: start: 2009, end: 201210
  4. PENTASA [Concomitant]
     Indication: CROHN^S DISEASE
  5. OMEPRAZOLE [Concomitant]
     Indication: CROHN^S DISEASE
  6. OMEPRAZOLE [Concomitant]
     Indication: GASTROOESOPHAGEAL REFLUX DISEASE
  7. DOCUSATE SODIUM [Concomitant]
     Indication: SUPPLEMENTATION THERAPY
     Dosage: 4-5 TIMES PER DAY
  8. BIG 100 VITAMIN B [Concomitant]
     Indication: VITAMIN SUPPLEMENTATION
     Dosage: DAILY
  9. DICYCLOMINE [Concomitant]
     Indication: CROHN^S DISEASE
     Dosage: 1 TABLET BEFORE MEALS AND AT BEDTIME
  10. PROMETHAZINE [Concomitant]
     Indication: NAUSEA
     Dosage: PRN
  11. ALEVE [Concomitant]
     Indication: PAIN
  12. MECLIZINE [Concomitant]
     Indication: DIZZINESS
     Dosage: TID, PRN
  13. VICODIN [Concomitant]
     Indication: ABDOMINAL PAIN
  14. IMURAN [Concomitant]
     Indication: CROHN^S DISEASE

REACTIONS (10)
  - Injection site pain [Not Recovered/Not Resolved]
  - Memory impairment [Not Recovered/Not Resolved]
  - Abdominal pain [Not Recovered/Not Resolved]
  - Pain [Not Recovered/Not Resolved]
  - Pain [Not Recovered/Not Resolved]
  - Euphoric mood [Unknown]
  - Vomiting [Not Recovered/Not Resolved]
  - Injection site pain [Recovered/Resolved]
  - Drug ineffective [Not Recovered/Not Resolved]
  - Crohn^s disease [Recovered/Resolved]
